FAERS Safety Report 5022389-5 (Version None)
Quarter: 2006Q2

REPORT INFORMATION
  Report Type: 
  Country: None (occurrence: None)
  Receive Date: 20060605
  Receipt Date: 20060522
  Transmission Date: 20061013
  Serious: Yes (Other)
  Sender: FDA-Public Use
  Company Number: 2006RR-02383

PATIENT
  Age: 69 Year
  Sex: Female

DRUGS (4)
  1. ISOTRETINOIN [Suspect]
     Dosage: 1.5 MG/KG, QD
     Dates: start: 20030201, end: 20030101
  2. RECOMBINANT THYROTROPIN (RECOMBINANT HUMAN THYROTROPIN) [Suspect]
     Indication: THYROID DISORDER
     Dosage: SEE IMAGE
     Dates: start: 20030101, end: 20030101
  3. RECOMBINANT THYROTROPIN (RECOMBINANT HUMAN THYROTROPIN) [Suspect]
     Indication: THYROID DISORDER
     Dosage: SEE IMAGE
     Dates: start: 20030101, end: 20030101
  4. LEVOTHYROXINE SODIUM [Concomitant]

REACTIONS (14)
  - CONJUNCTIVAL HYPERAEMIA [None]
  - CONJUNCTIVAL OEDEMA [None]
  - DIPLOPIA [None]
  - DRUG INTERACTION [None]
  - EXOPHTHALMOS [None]
  - EXTRAOCULAR MUSCLE DISORDER [None]
  - EYE MOVEMENT DISORDER [None]
  - EYE OEDEMA [None]
  - EYE PAIN [None]
  - EYELID OEDEMA [None]
  - HYPOTHYROIDISM [None]
  - LACRIMATION INCREASED [None]
  - OPTIC ATROPHY [None]
  - PHOTOPHOBIA [None]
